FAERS Safety Report 9964396 (Version 3)
Quarter: 2014Q1

REPORT INFORMATION
  Report Type: Spontaneous
  Country: US (occurrence: US)
  Receive Date: 20140305
  Receipt Date: 20140312
  Transmission Date: 20141002
  Serious: Yes (Other)
  Sender: FDA-Public Use
  Company Number: CHPA2014US003304

PATIENT
  Age: 52 Year
  Sex: Male

DRUGS (2)
  1. PRIVATE LABEL [Suspect]
     Indication: SMOKING CESSATION THERAPY
     Dosage: 7 MG, QD
     Route: 062
     Dates: start: 201401
  2. PRIVATE LABEL [Suspect]
     Indication: OFF LABEL USE

REACTIONS (4)
  - Drug dependence [Unknown]
  - Insomnia [Unknown]
  - Incorrect dose administered [Unknown]
  - Drug ineffective [Unknown]
